FAERS Safety Report 17403221 (Version 1)
Quarter: 2020Q1

REPORT INFORMATION
  Report Type: Spontaneous
  Country: GB (occurrence: GB)
  Receive Date: 20200211
  Receipt Date: 20200211
  Transmission Date: 20200409
  Serious: Yes (Death)
  Sender: FDA-Public Use
  Company Number: NVSC2020GB034717

PATIENT
  Age: 57 Year
  Sex: Female

DRUGS (1)
  1. ENTRESTO [Suspect]
     Active Substance: SACUBITRIL\VALSARTAN
     Indication: CARDIAC FAILURE
     Dosage: 100 MG, BID (49/51)
     Route: 048
     Dates: start: 20180522

REACTIONS (10)
  - Respiratory distress [Fatal]
  - Cerebrovascular accident [Fatal]
  - Hydrocephalus [Fatal]
  - Cerebral artery embolism [Fatal]
  - Aphasia [Fatal]
  - Bradycardia [Fatal]
  - Pulmonary embolism [Fatal]
  - Facial paralysis [Fatal]
  - Cerebral infarction [Fatal]
  - Hemiparesis [Fatal]

NARRATIVE: CASE EVENT DATE: 20191215
